FAERS Safety Report 10189740 (Version 1)
Quarter: 2014Q2

REPORT INFORMATION
  Report Type: Spontaneous
  Country: US (occurrence: US)
  Receive Date: 20140522
  Receipt Date: 20140522
  Transmission Date: 20141212
  Serious: Yes (Other)
  Sender: FDA-Public Use
  Company Number: US-SANOFI-AVENTIS-2013SA043077

PATIENT
  Age: 78 Year
  Sex: Male

DRUGS (1)
  1. LANTUS [Suspect]
     Indication: TYPE 2 DIABETES MELLITUS
     Dosage: DOSAGE:- 100 UNITS/ ML AND FREQUENCY:-60 UNITS DAILY DOSE:60 UNIT(S)
     Route: 051

REACTIONS (2)
  - Coma [Unknown]
  - Hyperhidrosis [Unknown]
